FAERS Safety Report 18073441 (Version 2)
Quarter: 2020Q3

REPORT INFORMATION
  Report Type: Spontaneous
  Country: BR (occurrence: BR)
  Receive Date: 20200727
  Receipt Date: 20200810
  Transmission Date: 20201103
  Serious: Yes (Hospitalization)
  Sender: FDA-Public Use
  Company Number: BR-GLAXOSMITHKLINE-BR2020AMR128692

PATIENT
  Age: 29 Year
  Sex: Female
  Weight: 82 kg

DRUGS (12)
  1. LAMIVUDINE + TENOFOVIR [Suspect]
     Active Substance: LAMIVUDINE\TENOFOVIR
     Indication: HIV INFECTION
     Dosage: UNK
  2. RITONAVIR. [Suspect]
     Active Substance: RITONAVIR
     Indication: HIV INFECTION
     Dosage: 100 MG, QD
  3. BENZATHINE PENICILLIN [Concomitant]
     Active Substance: PENICILLIN G BENZATHINE
     Dosage: UNK
     Dates: start: 202004
  4. NITROFURANTOIN. [Suspect]
     Active Substance: NITROFURANTOIN
     Indication: PRODUCT USED FOR UNKNOWN INDICATION
     Dosage: 100 MG, QID
     Dates: start: 201911
  5. FOLIC ACID. [Suspect]
     Active Substance: FOLIC ACID
     Indication: PRODUCT USED FOR UNKNOWN INDICATION
     Dosage: 5 MG, QD THE FIRST WEEKS
  6. CEPHALEXIN. [Suspect]
     Active Substance: CEPHALEXIN
     Indication: PRODUCT USED FOR UNKNOWN INDICATION
     Dosage: 500 MG, QID
     Dates: start: 201911
  7. PARACETAMOL [Suspect]
     Active Substance: ACETAMINOPHEN
     Indication: PRODUCT USED FOR UNKNOWN INDICATION
     Dosage: 500 MG
  8. DIMENHYDRINATE. [Concomitant]
     Active Substance: DIMENHYDRINATE
     Indication: PRODUCT USED FOR UNKNOWN INDICATION
     Dosage: 100 MG, SPORADICALLY,
  9. VITAMIN D [Suspect]
     Active Substance: VITAMIN D NOS
     Indication: PRODUCT USED FOR UNKNOWN INDICATION
     Dosage: UNK
     Dates: start: 202002
  10. ATAZANAVIR. [Suspect]
     Active Substance: ATAZANAVIR
     Indication: HIV INFECTION
     Dosage: 300 MG, QD
  11. BENZATHINE PENICILLIN [Concomitant]
     Active Substance: PENICILLIN G BENZATHINE
     Dosage: UNK
     Dates: start: 202005
  12. BENZATHINE PENICILLIN [Concomitant]
     Active Substance: PENICILLIN G BENZATHINE
     Indication: SYPHILIS
     Dosage: UNK, 7.2 MU
     Dates: start: 201911

REACTIONS (4)
  - Female sterilisation [Unknown]
  - Live birth [Unknown]
  - Exposure during pregnancy [Unknown]
  - Caesarean section [Unknown]

NARRATIVE: CASE EVENT DATE: 20200521
